FAERS Safety Report 16486017 (Version 1)
Quarter: 2019Q2

REPORT INFORMATION
  Report Type: Spontaneous
  Country: FR (occurrence: FR)
  Receive Date: 20190627
  Receipt Date: 20190627
  Transmission Date: 20190711
  Serious: Yes (Hospitalization)
  Sender: FDA-Public Use
  Company Number: FR-TEVA-2019-FR-1067129

PATIENT
  Age: 78 Year
  Sex: Male
  Weight: 59.4 kg

DRUGS (6)
  1. PREVISCAN 20 MG, SPLIT TABLET (FLUINDIONE) [Interacting]
     Active Substance: FLUINDIONE
     Indication: ATRIAL FIBRILLATION
     Dosage: 5 MILLIGRAM DAILY;
     Route: 048
     Dates: end: 20190529
  2. ALPRAZOLAM. [Concomitant]
     Active Substance: ALPRAZOLAM
     Indication: DEPRESSION
     Dosage: .5 MILLIGRAM DAILY;
     Route: 048
     Dates: end: 20190531
  3. CITALOPRAM [Suspect]
     Active Substance: CITALOPRAM HYDROBROMIDE
     Indication: DEPRESSION
     Dosage: 1 DOSAGE FORMS DAILY;
     Route: 048
     Dates: end: 20190531
  4. SPECIAFOLDINE 5 MG, TABLET [Concomitant]
     Dosage: 1 DOSAGE FORMS DAILY;
     Route: 048
     Dates: end: 20190531
  5. TERCIAN 40 MG/ML, DRINKABLE SOLUTION IN DROPS [Concomitant]
     Indication: DEPRESSION
     Dosage: 6 GTT DAILY;
     Route: 048
     Dates: end: 20190531
  6. ESOMEPRAZOLE. [Concomitant]
     Active Substance: ESOMEPRAZOLE MAGNESIUM
     Indication: PROPHYLAXIS
     Dosage: 20 MILLIGRAM DAILY;
     Route: 048
     Dates: end: 20190531

REACTIONS (2)
  - Cerebral haematoma [Not Recovered/Not Resolved]
  - Drug interaction [Unknown]

NARRATIVE: CASE EVENT DATE: 20190530
